FAERS Safety Report 18591295 (Version 3)
Quarter: 2020Q4

REPORT INFORMATION
  Report Type: Report from Study
  Country: US (occurrence: US)
  Receive Date: 20201208
  Receipt Date: 20201211
  Transmission Date: 20210114
  Serious: Yes (Hospitalization)
  Sender: FDA-Public Use
  Company Number: US-ASTRAZENECA-2020SF52866

PATIENT
  Age: 25924 Day
  Sex: Female
  Weight: 69.9 kg

DRUGS (3)
  1. DURVALUMAB. [Suspect]
     Active Substance: DURVALUMAB
     Indication: OVARIAN CANCER
     Route: 042
     Dates: start: 20200605, end: 20201023
  2. TREMELIMUMAB. [Suspect]
     Active Substance: TREMELIMUMAB
     Indication: OVARIAN CANCER
     Route: 042
     Dates: start: 20200605, end: 20201023
  3. OLAPARIB. [Suspect]
     Active Substance: OLAPARIB
     Indication: OVARIAN CANCER
     Route: 048
     Dates: start: 20200605, end: 20201024

REACTIONS (1)
  - Immune-mediated enterocolitis [Unknown]

NARRATIVE: CASE EVENT DATE: 20201117
